FAERS Safety Report 9722407 (Version 1)
Quarter: 2013Q4

REPORT INFORMATION
  Report Type: Report from Study
  Country: CL (occurrence: CL)
  Receive Date: 20131202
  Receipt Date: 20131202
  Transmission Date: 20140711
  Serious: Yes (Other)
  Sender: FDA-Public Use
  Company Number: PHHY2013CL139195

PATIENT
  Age: 19 Year
  Sex: Male

DRUGS (2)
  1. LEPONEX [Suspect]
     Dosage: 50 MG
     Route: 048
     Dates: start: 20131119
  2. LEPONEX [Suspect]
     Dosage: DOSE INCREASED
     Route: 048

REACTIONS (1)
  - General physical health deterioration [Unknown]
